FAERS Safety Report 5573222-4 (Version None)
Quarter: 2007Q4

REPORT INFORMATION
  Report Type: 
  Country: None (occurrence: None)
  Receive Date: 20071220
  Receipt Date: 20071210
  Transmission Date: 20080405
  Serious: Yes (Hospitalization)
  Sender: FDA-Public Use
  Company Number: TCI2007A06577

PATIENT
  Age: 52 Year
  Sex: Male

DRUGS (1)
  1. PIOGLITAZONE HCL [Suspect]
     Indication: TYPE 2 DIABETES MELLITUS
     Dosage: 30 MG (30 MG, 1 IN 1 D) PER ORAL
     Route: 048
     Dates: start: 20070916, end: 20071128

REACTIONS (3)
  - INTERCOSTAL NEURALGIA [None]
  - MYOCARDIAL INFARCTION [None]
  - SENSATION OF PRESSURE [None]
